FAERS Safety Report 4767894-1 (Version None)
Quarter: 2005Q3

REPORT INFORMATION
  Report Type: 
  Country: None (occurrence: None)
  Receive Date: 20050913
  Receipt Date: 20050906
  Transmission Date: 20060218
  Serious: Yes (Hospitalization)
  Sender: FDA-Public Use
  Company Number: US-MERCK-0509USA00396

PATIENT
  Sex: Female

DRUGS (13)
  1. PEPCID [Suspect]
     Indication: GASTROOESOPHAGEAL REFLUX DISEASE
     Route: 048
  2. TAGAMET [Suspect]
     Indication: GASTROOESOPHAGEAL REFLUX DISEASE
     Route: 048
     Dates: start: 19950101, end: 20050722
  3. CIMETIDINE [Suspect]
     Indication: GASTROOESOPHAGEAL REFLUX DISEASE
     Route: 065
  4. PRILOSEC [Suspect]
     Indication: GASTROOESOPHAGEAL REFLUX DISEASE
     Route: 065
  5. NEXIUM [Suspect]
     Indication: GASTROOESOPHAGEAL REFLUX DISEASE
     Route: 065
  6. PHENAZOPYRIDINE HCL TAB [Concomitant]
     Route: 065
  7. MACROBID [Concomitant]
     Route: 065
  8. PROPANTHELINE BROMIDE [Concomitant]
     Route: 065
  9. CANASA [Concomitant]
     Route: 065
  10. VALIUM [Concomitant]
     Route: 065
  11. CELEXA [Concomitant]
     Route: 065
  12. ZANTAC [Suspect]
     Indication: GASTROOESOPHAGEAL REFLUX DISEASE
     Route: 048
     Dates: start: 20050811, end: 20050811
  13. OMEPRAZOLE [Suspect]
     Indication: GASTROOESOPHAGEAL REFLUX DISEASE
     Route: 065

REACTIONS (7)
  - BLADDER SPASM [None]
  - DIZZINESS [None]
  - DRUG INEFFECTIVE [None]
  - EATING DISORDER [None]
  - MALAISE [None]
  - NAUSEA [None]
  - SUICIDAL IDEATION [None]
